FAERS Safety Report 5917331-6 (Version None)
Quarter: 2008Q4

REPORT INFORMATION
  Report Type: 
  Country: None (occurrence: None)
  Receive Date: 20081014
  Receipt Date: 20081003
  Transmission Date: 20090506
  Serious: Yes (Other)
  Sender: FDA-Public Use
  Company Number: US-WYE-H06254308

PATIENT
  Age: 6 Year
  Sex: Female

DRUGS (1)
  1. BROMPHENIRAMINE MALEATE + PHENYLPROPANOLAMINE HCL [Suspect]
     Indication: DRUG USE FOR UNKNOWN INDICATION
     Dosage: UNKNOWN
     Route: 048

REACTIONS (3)
  - ADVERSE DRUG REACTION [None]
  - FALL [None]
  - UNEVALUABLE EVENT [None]
